FAERS Safety Report 6301270-5 (Version None)
Quarter: 2009Q3

REPORT INFORMATION
  Report Type: 
  Country: None (occurrence: None)
  Receive Date: 20090806
  Receipt Date: 20090806
  Transmission Date: 20100115
  Serious: No
  Sender: FDA-Public Use
  Company Number: None

PATIENT
  Age: 76 Year
  Sex: Female
  Weight: 68.0396 kg

DRUGS (2)
  1. TEKTURNA [Suspect]
     Indication: DIABETES MELLITUS
     Dosage: 1 TB DAILY DAILY BY MOUTH
     Route: 048
     Dates: start: 20090505, end: 20090616
  2. TEKTURNA [Suspect]
     Indication: HYPERTENSION
     Dosage: 1 TB DAILY DAILY BY MOUTH
     Route: 048
     Dates: start: 20090505, end: 20090616

REACTIONS (3)
  - MYALGIA [None]
  - PAIN [None]
  - PARALYSIS [None]
